FAERS Safety Report 14107012 (Version 1)
Quarter: 2017Q4

REPORT INFORMATION
  Report Type: Spontaneous
  Country: US (occurrence: None)
  Receive Date: 20171018
  Receipt Date: 20171018
  Transmission Date: 20180321
  Serious: No
  Sender: FDA-Public Use
  Company Number: None

PATIENT
  Age: 58 Year
  Sex: Female

DRUGS (3)
  1. TRANS TRACKER F (HEAT) [Suspect]
     Active Substance: DEVICE
  2. ENBREL [Suspect]
     Active Substance: ETANERCEPT
  3. PLEXUS [Concomitant]

REACTIONS (7)
  - Skin plaque [None]
  - Arthralgia [None]
  - Disease recurrence [None]
  - Scab [None]
  - Pain in extremity [None]
  - Rash macular [None]
  - Joint stiffness [None]

NARRATIVE: CASE EVENT DATE: 20171018
